FAERS Safety Report 14236108 (Version 1)
Quarter: 2017Q4

REPORT INFORMATION
  Report Type: Spontaneous
  Country: US (occurrence: US)
  Receive Date: 20171129
  Receipt Date: 20171129
  Transmission Date: 20180321
  Serious: No
  Sender: FDA-Public Use
  Company Number: US-AUROBINDO-AUR-APL-2017-41456

PATIENT
  Age: 22 Year
  Sex: Female

DRUGS (2)
  1. VITAMIN-A [Concomitant]
     Active Substance: VITAMIN A
     Route: 065
  2. FLUCONAZOLE TABLETS 150 MG [Suspect]
     Active Substance: FLUCONAZOLE
     Indication: FUNGAL INFECTION
     Dosage: 150 MG, ONCE A DAY
     Route: 048
     Dates: start: 20170910

REACTIONS (1)
  - Drug ineffective [Unknown]
